FAERS Safety Report 16383076 (Version 9)
Quarter: 2019Q4

REPORT INFORMATION
  Report Type: Spontaneous
  Country: US (occurrence: US)
  Receive Date: 20190603
  Receipt Date: 20191206
  Transmission Date: 20200122
  Serious: Yes (Other)
  Sender: FDA-Public Use
  Company Number: PHEH2019US023501

PATIENT
  Age: 30 Year
  Sex: Female

DRUGS (2)
  1. ZOFRAN [Suspect]
     Active Substance: ONDANSETRON HYDROCHLORIDE
     Indication: PRODUCT USED FOR UNKNOWN INDICATION
     Route: 048
  2. ONDANSETRON. [Suspect]
     Active Substance: ONDANSETRON
     Indication: MORNING SICKNESS
     Dosage: 4 MG, PRN
     Route: 048
     Dates: start: 20101219, end: 20110621

REACTIONS (10)
  - Anhedonia [Unknown]
  - Anxiety [Unknown]
  - Premature delivery [Unknown]
  - Gestational hypertension [Unknown]
  - Maternal exposure during pregnancy [Unknown]
  - Pain [Unknown]
  - Product use issue [Unknown]
  - Gestational diabetes [Unknown]
  - Injury [Unknown]
  - Emotional distress [Unknown]

NARRATIVE: CASE EVENT DATE: 20110621
